FAERS Safety Report 21698476 (Version 1)
Quarter: 2022Q4

REPORT INFORMATION
  Report Type: Spontaneous
  Country: US (occurrence: US)
  Receive Date: 20221208
  Receipt Date: 20221208
  Transmission Date: 20230113
  Serious: Yes (Hospitalization)
  Sender: FDA-Public Use
  Company Number: US-STRIDES ARCOLAB LIMITED-2022SP012212

PATIENT
  Sex: Male
  Weight: 74.2 kg

DRUGS (8)
  1. OLANZAPINE [Suspect]
     Active Substance: OLANZAPINE
     Indication: Mania
     Dosage: 5 MILLIGRAM, AT BED TIME (PER DAY)
     Route: 065
  2. OLANZAPINE [Suspect]
     Active Substance: OLANZAPINE
     Dosage: 7.5 MILLIGRAM, AT BED TIME (PER DAY)
     Route: 065
  3. TAMSULOSIN [Concomitant]
     Active Substance: TAMSULOSIN
     Indication: Benign prostatic hyperplasia
     Dosage: 0.4 MILLIGRAM (BEDTIME  )
     Route: 065
  4. ASPIRIN [Concomitant]
     Active Substance: ASPIRIN
     Indication: Product used for unknown indication
     Dosage: 81 MILLIGRAM (DAILY)
     Route: 065
  5. ACETAMINOPHEN\DIPHENHYDRAMINE HYDROCHLORIDE [Concomitant]
     Active Substance: ACETAMINOPHEN\DIPHENHYDRAMINE HYDROCHLORIDE
     Indication: Insomnia
     Dosage: UNK, 500 MG/25 MG AS NEEDED
     Route: 065
  6. SILDENAFIL [Concomitant]
     Active Substance: SILDENAFIL
     Indication: Erectile dysfunction
     Dosage: 100 MILLIGRAM (AS NEEDED)
     Route: 065
  7. BUPROPION [Concomitant]
     Active Substance: BUPROPION
     Indication: Depression
     Dosage: 100 MILLIGRAM, BID (SUSTAINED RELEASE)
     Route: 048
  8. BUPROPION [Concomitant]
     Active Substance: BUPROPION
     Indication: Suicidal ideation

REACTIONS (1)
  - Drug-induced liver injury [Recovered/Resolved]
